FAERS Safety Report 7786965-9 (Version None)
Quarter: 2011Q3

REPORT INFORMATION
  Report Type: 
  Country: None (occurrence: None)
  Receive Date: 20110929
  Receipt Date: 20110926
  Transmission Date: 20111222
  Serious: Yes (Other)
  Sender: FDA-Public Use
  Company Number: US-PFIZER INC-2011229379

PATIENT
  Sex: Female
  Weight: 67.12 kg

DRUGS (3)
  1. MIRAPEX [Concomitant]
     Indication: RESTLESS LEGS SYNDROME
     Dosage: UNK
  2. CHANTIX [Suspect]
     Indication: SMOKING CESSATION THERAPY
     Dosage: 0.5 MG, 1X/DAY
     Route: 048
     Dates: start: 20110914, end: 20110901
  3. CHANTIX [Suspect]
     Dosage: 0.5 MG, 2X/DAY
     Route: 048
     Dates: start: 20110901, end: 20110919

REACTIONS (4)
  - SWELLING FACE [None]
  - EYE SWELLING [None]
  - RASH [None]
  - PRURITUS [None]
